FAERS Safety Report 16150296 (Version 1)
Quarter: 2019Q2

REPORT INFORMATION
  Report Type: Spontaneous
  Country: US (occurrence: US)
  Receive Date: 20190402
  Receipt Date: 20190402
  Transmission Date: 20190711
  Serious: Yes (Life-Threatening, Disabling)
  Sender: FDA-Public Use
  Company Number: None

PATIENT
  Age: 56 Year
  Sex: Male
  Weight: 93.15 kg

DRUGS (1)
  1. NON IONIZED IODINE [Suspect]
     Active Substance: IODINE

REACTIONS (20)
  - Gastrointestinal disorder [None]
  - Fatigue [None]
  - Bone atrophy [None]
  - Premature ageing [None]
  - Disability [None]
  - Constipation [None]
  - Alopecia [None]
  - Sensory disturbance [None]
  - Rhinorrhoea [None]
  - Vasodilatation [None]
  - Dyspepsia [None]
  - Radiation overdose [None]
  - Hyperhidrosis [None]
  - Morbid thoughts [None]
  - Insomnia [None]
  - Hypoaesthesia [None]
  - Decreased appetite [None]
  - Anaphylactic reaction [None]
  - Dysgeusia [None]
  - Peripheral swelling [None]

NARRATIVE: CASE EVENT DATE: 20170411
